FAERS Safety Report 10171415 (Version 1)
Quarter: 2014Q2

REPORT INFORMATION
  Report Type: Spontaneous
  Country: US (occurrence: None)
  Receive Date: 20140428
  Receipt Date: 20140428
  Transmission Date: 20141212
  Serious: Yes (Other)
  Sender: FDA-Public Use
  Company Number: 2523595-2014-00120

PATIENT
  Age: 61 Year
  Sex: Male
  Weight: 84.51 kg

DRUGS (2)
  1. UVADEX [Suspect]
     Indication: HEART TRANSPLANT
  2. UVADEX [Suspect]
     Indication: POSTOPERATIVE CARE

REACTIONS (2)
  - Unevaluable event [None]
  - Swelling [None]
